FAERS Safety Report 7299716-1 (Version None)
Quarter: 2011Q1

REPORT INFORMATION
  Report Type: 
  Country: None (occurrence: None)
  Receive Date: 20110217
  Receipt Date: 20101220
  Transmission Date: 20110831
  Serious: Yes (Other)
  Sender: FDA-Public Use
  Company Number: US-BAYER-201027245NA

PATIENT
  Sex: Female
  Weight: 105.67 kg

DRUGS (4)
  1. BONTRIL [Suspect]
     Dosage: 105 MG, UNK
  2. YAZ [Suspect]
     Route: 048
     Dates: start: 20070101, end: 20071201
  3. YASMIN [Suspect]
     Indication: CONTRACEPTION
     Dosage: UNK
     Dates: start: 20070101
  4. EFFEXOR [Concomitant]

REACTIONS (3)
  - ABDOMINAL PAIN UPPER [None]
  - CHOLELITHIASIS [None]
  - BACK PAIN [None]
